FAERS Safety Report 5704781-6 (Version None)
Quarter: 2008Q2

REPORT INFORMATION
  Report Type: 
  Country: None (occurrence: None)
  Receive Date: 20080414
  Receipt Date: 20080404
  Transmission Date: 20081010
  Serious: Yes (Other)
  Sender: FDA-Public Use
  Company Number: US-PFIZER INC-2008012228

PATIENT
  Sex: Female
  Weight: 50 kg

DRUGS (3)
  1. XALATAN [Suspect]
     Indication: GLAUCOMA
  2. SYNTHROID [Concomitant]
     Indication: HYPERTHYROIDISM
  3. ZOLOFT [Concomitant]

REACTIONS (9)
  - BLEPHAROPLASTY [None]
  - CATARACT OPERATION [None]
  - DRY EYE [None]
  - EYE PAIN [None]
  - FOREIGN BODY SENSATION IN EYES [None]
  - ILL-DEFINED DISORDER [None]
  - IMPAIRED DRIVING ABILITY [None]
  - PHOTOPHOBIA [None]
  - PUNCTAL PLUG INSERTION [None]
